FAERS Safety Report 5250852-0 (Version None)
Quarter: 2007Q1

REPORT INFORMATION
  Report Type: 
  Country: None (occurrence: None)
  Receive Date: 20070228
  Receipt Date: 20060712
  Transmission Date: 20070707
  Serious: No
  Sender: FDA-Public Use
  Company Number: US-GLAXOSMITHKLINE-A0612717A

PATIENT
  Sex: Female

DRUGS (2)
  1. LAMICTAL [Suspect]
     Indication: NEUROPATHY
     Route: 048
  2. NEURONTIN [Suspect]
     Indication: NEUROPATHY
     Route: 048

REACTIONS (2)
  - ADVERSE EVENT [None]
  - NAUSEA [None]
